FAERS Safety Report 7822307-8 (Version None)
Quarter: 2011Q4

REPORT INFORMATION
  Report Type: 
  Country: None (occurrence: None)
  Receive Date: 20111018
  Receipt Date: 20101027
  Transmission Date: 20120403
  Serious: No
  Sender: FDA-Public Use
  Company Number: US-ASTRAZENECA-2010SE41117

PATIENT
  Sex: Female

DRUGS (3)
  1. SYMBICORT [Suspect]
     Indication: CHRONIC OBSTRUCTIVE PULMONARY DISEASE
     Dosage: 80/4.5 MICROGRAM, TOTAL DAILY DOSE 320 MCG
     Route: 055
     Dates: start: 20090101
  2. ALBUTEROL [Concomitant]
  3. HYPERTENSION MEDICATIONS [Concomitant]

REACTIONS (4)
  - SINUS CONGESTION [None]
  - MUSCLE SPASMS [None]
  - URTICARIA [None]
  - MYALGIA [None]
